FAERS Safety Report 11390970 (Version 1)
Quarter: 2015Q3

REPORT INFORMATION
  Report Type: Spontaneous
  Country: GB (occurrence: None)
  Receive Date: 20150813
  Receipt Date: 20150813
  Transmission Date: 20151125
  Serious: Yes (Hospitalization)
  Sender: FDA-Public Use
  Company Number: ABR_02326_2015

PATIENT
  Age: 8 Year
  Sex: Male

DRUGS (8)
  1. DIAZEPAM. [Concomitant]
     Active Substance: DIAZEPAM
  2. ERYTHROMYCIN (ERYTHROMYCIN) [Suspect]
     Active Substance: ERYTHROMYCIN
     Indication: LOWER RESPIRATORY TRACT INFECTION
     Dosage: DF 2 DAYS UNTIL NOT CONTINUING
  3. CARBAMAZEPINE. [Concomitant]
     Active Substance: CARBAMAZEPINE
  4. LANSOPRAZOLE. [Concomitant]
     Active Substance: LANSOPRAZOLE
  5. NITRAZEPAM [Concomitant]
     Active Substance: NITRAZEPAM
  6. TRIHEXYPHENIDYL [Suspect]
     Active Substance: TRIHEXYPHENIDYL
     Indication: DROOLING
  7. BACLOFEN. [Concomitant]
     Active Substance: BACLOFEN
  8. DOCUSATE SODIUM. [Concomitant]
     Active Substance: DOCUSATE SODIUM

REACTIONS (4)
  - Hypophosphataemia [None]
  - Acidosis [None]
  - Hypokalaemia [None]
  - Colonic pseudo-obstruction [None]
